FAERS Safety Report 11728793 (Version 1)
Quarter: 2015Q4

REPORT INFORMATION
  Report Type: Other
  Country: GB (occurrence: GB)
  Receive Date: 20151112
  Receipt Date: 20151112
  Transmission Date: 20160304
  Serious: Yes (Other)
  Sender: FDA-Public Use
  Company Number: GB-MYLANLABS-2015M1037799

PATIENT

DRUGS (4)
  1. CITALOPRAM [Suspect]
     Active Substance: CITALOPRAM HYDROBROMIDE
     Dosage: 10 MG, QD
     Route: 048
  2. CITALOPRAM [Suspect]
     Active Substance: CITALOPRAM HYDROBROMIDE
     Dosage: 40 MG, QD
     Route: 048
  3. CITALOPRAM [Suspect]
     Active Substance: CITALOPRAM HYDROBROMIDE
     Indication: DEPRESSION
     Dosage: 20 MG, QD
     Route: 048
  4. MIRENA [Concomitant]
     Active Substance: LEVONORGESTREL
     Indication: ENDOMETRIOSIS
     Dosage: UNK (FOR NEARLY 5 YEARS)

REACTIONS (6)
  - Galactorrhoea [Recovered/Resolved]
  - Anhedonia [Recovered/Resolved]
  - Loss of libido [Recovering/Resolving]
  - Depression [Recovered/Resolved]
  - Condition aggravated [Unknown]
  - Abnormal weight gain [Recovered/Resolved with Sequelae]

NARRATIVE: CASE EVENT DATE: 201409
